FAERS Safety Report 9598036 (Version 1)
Quarter: 2013Q4

REPORT INFORMATION
  Report Type: Spontaneous
  Country: US (occurrence: US)
  Receive Date: 20131004
  Receipt Date: 20131004
  Transmission Date: 20140711
  Serious: No
  Sender: FDA-Public Use
  Company Number: US-AMGEN-USASP2013021957

PATIENT
  Age: 73 Year
  Sex: Female
  Weight: 68.48 kg

DRUGS (6)
  1. ENBREL [Suspect]
     Indication: PRODUCT USED FOR UNKNOWN INDICATION
     Dosage: 50 MG, QWK
     Route: 058
  2. AZATHIOPRINE [Concomitant]
     Dosage: 50 MG, UNK
  3. METHOTREXATE [Concomitant]
     Dosage: 2.5 MG, UNK
  4. FOLIC ACID [Concomitant]
     Dosage: 5 MG, UNK
  5. AMLODIPINE [Concomitant]
     Dosage: 2.5 MG, UNK
  6. FOSAMAX [Concomitant]
     Dosage: 10 MG, UNK

REACTIONS (2)
  - Urticaria [Unknown]
  - Urinary tract infection [Unknown]
